FAERS Safety Report 21732607 (Version 1)
Quarter: 2022Q4

REPORT INFORMATION
  Report Type: Spontaneous
  Country: PL (occurrence: PL)
  Receive Date: 20221215
  Receipt Date: 20221215
  Transmission Date: 20230112
  Serious: Yes (Hospitalization)
  Sender: FDA-Public Use
  Company Number: PL202211014336

PATIENT
  Sex: Male
  Weight: 90 kg

DRUGS (5)
  1. BENDAMUSTINE HYDROCHLORIDE [Suspect]
     Active Substance: BENDAMUSTINE HYDROCHLORIDE
     Indication: Product used for unknown indication
     Dosage: 155 MILLIGRAM, CYCLICAL (EVERY 28 DAYS)
     Route: 042
     Dates: start: 20220728
  2. BENDAMUSTINE HYDROCHLORIDE [Suspect]
     Active Substance: BENDAMUSTINE HYDROCHLORIDE
     Dosage: 155 MILLIGRAM, CYCLICAL (EVERY 28 DAYS)
     Route: 042
     Dates: start: 20221026
  3. RITUXIMAB [Suspect]
     Active Substance: RITUXIMAB
     Indication: Product used for unknown indication
     Dosage: 1100 UNK, CYCLICAL (EVERY 28 DAYS)
     Route: 042
     Dates: start: 20220728
  4. RITUXIMAB [Suspect]
     Active Substance: RITUXIMAB
     Dosage: 1100 UNK, CYCLICAL (EVERY 28 DAYS)
     Route: 042
     Dates: start: 20221025
  5. ALLOPURINOL [Concomitant]
     Active Substance: ALLOPURINOL
     Indication: Hyperuricaemia
     Dosage: UNK
     Route: 065
     Dates: start: 20221123

REACTIONS (2)
  - Chronic lymphocytic leukaemia [Not Recovered/Not Resolved]
  - Anaemia [Not Recovered/Not Resolved]

NARRATIVE: CASE EVENT DATE: 20221122
